FAERS Safety Report 7029713-2 (Version None)
Quarter: 2010Q4

REPORT INFORMATION
  Report Type: 
  Country: None (occurrence: None)
  Receive Date: 20101005
  Receipt Date: 20101005
  Transmission Date: 20110411
  Serious: Yes (Hospitalization)
  Sender: FDA-Public Use
  Company Number: None

PATIENT
  Sex: Male
  Weight: 92.8 kg

DRUGS (4)
  1. GEMCITABINE HCL [Suspect]
     Dosage: 12540 MG
  2. TARCEVA [Suspect]
     Dosage: 4300 MG
  3. GENTAMICIN [Concomitant]
  4. VANCOMYCIN [Concomitant]

REACTIONS (14)
  - ABDOMINAL PAIN UPPER [None]
  - ANGINA UNSTABLE [None]
  - BILE DUCT OBSTRUCTION [None]
  - BODY TEMPERATURE INCREASED [None]
  - CARDIAC VALVE VEGETATION [None]
  - CHILLS [None]
  - CHOLANGITIS [None]
  - DYSPNOEA EXERTIONAL [None]
  - ENTEROCOCCUS TEST POSITIVE [None]
  - ESCHERICHIA TEST POSITIVE [None]
  - LIVER FUNCTION TEST ABNORMAL [None]
  - NORMOCHROMIC NORMOCYTIC ANAEMIA [None]
  - RENAL FAILURE ACUTE [None]
  - SYNCOPE [None]
